FAERS Safety Report 15494027 (Version 1)
Quarter: 2018Q4

REPORT INFORMATION
  Report Type: Spontaneous
  Country: FR (occurrence: FR)
  Receive Date: 20181012
  Receipt Date: 20181012
  Transmission Date: 20190205
  Serious: Yes (Hospitalization, Other)
  Sender: FDA-Public Use
  Company Number: FR-TELIGENT, INC-IGIL20180586

PATIENT
  Age: 63 Year
  Sex: Male
  Weight: 85 kg

DRUGS (9)
  1. KEPPRA [Suspect]
     Active Substance: LEVETIRACETAM
     Indication: EPILEPSY
     Dosage: 1
     Route: 048
     Dates: start: 20180614, end: 20180904
  2. SEROPRAM (CITALOPRAM HYDROBROMIDE) [Suspect]
     Active Substance: CITALOPRAM HYDROBROMIDE
     Indication: DEPRESSION
     Dosage: 40 MG
     Route: 048
     Dates: start: 20171214, end: 20180817
  3. PERFALGAN [Suspect]
     Active Substance: ACETAMINOPHEN
     Indication: PYREXIA
     Dosage: 4 G
     Route: 042
     Dates: start: 20180903, end: 20180905
  4. RANITIDINE HYDROCHLORIDE. [Suspect]
     Active Substance: RANITIDINE HYDROCHLORIDE
     Indication: GASTRODUODENAL ULCER
     Dosage: 100 MG
     Route: 042
     Dates: start: 20180903, end: 20180905
  5. VALIUM [Suspect]
     Active Substance: DIAZEPAM
     Indication: SEIZURE
     Dosage: 1 IN THE MORNING AND 2 IN THE EVENING IF CONVULSIONS
     Route: 054
     Dates: start: 20171214, end: 20180903
  6. NORSET [Suspect]
     Active Substance: MIRTAZAPINE
     Indication: DEPRESSION
     Dosage: 30 MG
     Route: 048
     Dates: start: 20180817, end: 20180903
  7. CALCIDOSE [Suspect]
     Active Substance: CALCIUM CARBONATE
     Indication: HYPOVITAMINOSIS
     Dosage: 2 DF
     Route: 048
     Dates: start: 20180430, end: 20180903
  8. ZYMA D2 [Suspect]
     Active Substance: ERGOCALCIFEROL
     Indication: VITAMIN D DEFICIENCY
     Dosage: 1 DF
     Route: 048
     Dates: start: 20180227, end: 20180903
  9. PRINCI B (CYANOCOBALAMIN\PYRIDOXINE HYDROCHLORIDE\THIAMINE) [Suspect]
     Active Substance: CYANOCOBALAMIN\PYRIDOXINE HYDROCHLORIDE\THIAMINE
     Indication: ALCOHOL WITHDRAWAL SYNDROME
     Dosage: 3 DF
     Route: 048
     Dates: start: 20171214, end: 20180903

REACTIONS (2)
  - Hepatocellular injury [Recovering/Resolving]
  - Cholestasis [Recovering/Resolving]

NARRATIVE: CASE EVENT DATE: 20180904
